FAERS Safety Report 4843039-4 (Version None)
Quarter: 2005Q4

REPORT INFORMATION
  Report Type: 
  Country: None (occurrence: None)
  Receive Date: 20051130
  Receipt Date: 20051116
  Transmission Date: 20060501
  Serious: Yes (Hospitalization)
  Sender: FDA-Public Use
  Company Number: 2005RR-01166

PATIENT
  Age: 43 Year
  Sex: Male

DRUGS (7)
  1. CITALOPRAM [Suspect]
     Dosage: 3.5 MG/KG, ORAL
     Route: 048
  2. AMLODIPINE (AMLODIPINE) TABLET, 10MG [Suspect]
     Dosage: 10 MG, 56 TABLETS, ORAL
     Route: 048
  3. FLUOXETINE [Suspect]
     Dosage: 7.5 MG/KG, ORAL
     Route: 048
  4. PARACETAMOL FAMILY (PARACETAMOL) [Suspect]
     Dosage: 500 MG, ORAL
     Route: 048
  5. PERINDOPRIL (PERINDOPRIL) [Suspect]
     Dosage: 1.5 MG/KG, ORAL
     Route: 048
  6. FOLIC ACID [Suspect]
     Dosage: 30 TABLETS, ORAL
     Route: 048
  7. ASPIRIN [Suspect]
     Dosage: 93.75 MG/KG, ORAL
     Route: 048

REACTIONS (8)
  - ANURIA [None]
  - CIRCULATORY COLLAPSE [None]
  - DEPRESSED LEVEL OF CONSCIOUSNESS [None]
  - GLASGOW COMA SCALE ABNORMAL [None]
  - HYPOTENSION [None]
  - METABOLIC ACIDOSIS [None]
  - MICTURITION DISORDER [None]
  - MULTIPLE DRUG OVERDOSE [None]
